FAERS Safety Report 26117600 (Version 1)
Quarter: 2025Q4

REPORT INFORMATION
  Report Type: Spontaneous
  Country: US (occurrence: None)
  Receive Date: 20251203
  Receipt Date: 20251203
  Transmission Date: 20260118
  Serious: Yes (Other)
  Sender: FDA-CTU
  Company Number: None

PATIENT
  Age: 74 Year
  Sex: Male
  Weight: 99.79 kg

DRUGS (5)
  1. ATORVASTATIN CALCIUM [Suspect]
     Active Substance: ATORVASTATIN CALCIUM
     Indication: Blood cholesterol
     Dosage: 1-  PILL BED TIME MOUTH?
     Route: 048
     Dates: end: 20251118
  2. V-D [Concomitant]
  3. ATENOLOL [Concomitant]
     Active Substance: ATENOLOL
  4. NM-6603 [Concomitant]
     Active Substance: NM-6603
  5. HYDROCHLOROTHIAZIDE [Concomitant]
     Active Substance: HYDROCHLOROTHIAZIDE

REACTIONS (11)
  - Vitreous floaters [None]
  - Rash [None]
  - Dysgeusia [None]
  - Dyspnoea [None]
  - Muscle tightness [None]
  - Amnesia [None]
  - Burning sensation [None]
  - Paraesthesia [None]
  - Dysstasia [None]
  - Muscular weakness [None]
  - Hypoaesthesia [None]

NARRATIVE: CASE EVENT DATE: 20250908
